FAERS Safety Report 4905053-X (Version None)
Quarter: 2006Q1

REPORT INFORMATION
  Report Type: 
  Country: None (occurrence: None)
  Receive Date: 20060208
  Receipt Date: 20051109
  Transmission Date: 20060701
  Serious: No
  Sender: FDA-Public Use
  Company Number: US-GLAXOSMITHKLINE-A0581579A

PATIENT
  Age: 49 Year
  Sex: Female

DRUGS (1)
  1. PAXIL [Suspect]
     Indication: POSTPARTUM DEPRESSION
     Dosage: 30MG PER DAY
     Route: 048
     Dates: start: 20010511

REACTIONS (2)
  - ORGASM ABNORMAL [None]
  - WEIGHT INCREASED [None]
